FAERS Safety Report 5804182-6 (Version None)
Quarter: 2008Q3

REPORT INFORMATION
  Report Type: 
  Country: None (occurrence: None)
  Receive Date: 20080709
  Receipt Date: 20080630
  Transmission Date: 20090109
  Serious: Yes (Hospitalization, Other)
  Sender: FDA-Public Use
  Company Number: FR-JNJFOC-20080602583

PATIENT
  Sex: Female

DRUGS (2)
  1. RISPERDAL CONSTA [Suspect]
     Indication: SCHIZOPHRENIA
     Route: 030
  2. DEPAKOTE [Concomitant]
     Indication: DRUG THERAPY
     Route: 048

REACTIONS (5)
  - AMENORRHOEA [None]
  - CONDITION AGGRAVATED [None]
  - GALACTORRHOEA [None]
  - HEADACHE [None]
  - HYPERPROLACTINAEMIA [None]
